FAERS Safety Report 7435014-0 (Version None)
Quarter: 2011Q2

REPORT INFORMATION
  Report Type: 
  Country: None (occurrence: None)
  Receive Date: 20110415
  Receipt Date: 20100726
  Transmission Date: 20111010
  Serious: Yes (Disabling)
  Sender: FDA-Public Use
  Company Number: APP200900467

PATIENT
  Age: 47 Year
  Sex: Female
  Weight: 104 kg

DRUGS (7)
  1. ANCEF [Concomitant]
  2. SENSORCAINE [Suspect]
     Indication: MUSCULOSKELETAL PAIN
     Dosage: 120 ML, INTRA-ARTICULAR
     Route: 014
     Dates: start: 20080409
  3. STRYKER PAIN PUMP [Suspect]
     Indication: MUSCULOSKELETAL PAIN
     Dates: start: 20070801
  4. STRYKER PAIN PUMP [Suspect]
     Indication: MUSCULOSKELETAL PAIN
     Dates: start: 20080409
  5. CELESTONE [Suspect]
     Indication: JOINT INJECTION
     Dates: start: 20080409
  6. SENSORCAINE [Suspect]
     Indication: MUSCULOSKELETAL PAIN
     Dosage: 120 ML, CONTINUOUS VIA PUMP LEFT SHOULDER, INTRA-ARTICULAR; 30 ML, TOPICAL
     Dates: start: 20080409
  7. SENSORCAINE [Suspect]
     Indication: MUSCULOSKELETAL PAIN
     Dosage: 120 ML, CONTINUOUS VIA PUMP LEFT SHOULDER, INTRA-ARTICULAR; 30 ML, TOPICAL
     Dates: start: 20070801

REACTIONS (6)
  - MUSCULOSKELETAL PAIN [None]
  - JOINT RANGE OF MOTION DECREASED [None]
  - FALL [None]
  - INSOMNIA [None]
  - JOINT INJURY [None]
  - PERIARTHRITIS [None]
